FAERS Safety Report 8293917-1 (Version None)
Quarter: 2012Q2

REPORT INFORMATION
  Report Type: 
  Country: None (occurrence: None)
  Receive Date: 20120418
  Receipt Date: 20120411
  Transmission Date: 20120825
  Serious: No
  Sender: FDA-Public Use
  Company Number: US-PFIZER INC-2012090659

PATIENT
  Sex: Male
  Weight: 70.295 kg

DRUGS (5)
  1. LISINOPRIL [Concomitant]
     Dosage: UNK
  2. ASPIRIN [Concomitant]
     Dosage: UNK
  3. METFORMIN [Concomitant]
     Indication: DIABETES MELLITUS
     Dosage: UNK
  4. LYRICA [Suspect]
     Indication: DIABETES MELLITUS
     Dosage: 225 MG, 2X/DAY
     Route: 048
     Dates: start: 20120201
  5. LYRICA [Suspect]
     Indication: NEURALGIA

REACTIONS (5)
  - CONSTIPATION [None]
  - PARAESTHESIA [None]
  - HYPOAESTHESIA [None]
  - PAIN [None]
  - DRUG INEFFECTIVE [None]
